FAERS Safety Report 24838124 (Version 9)
Quarter: 2025Q2

REPORT INFORMATION
  Report Type: Spontaneous
  Country: CO (occurrence: CO)
  Receive Date: 20250113
  Receipt Date: 20250506
  Transmission Date: 20250716
  Serious: No
  Sender: PFIZER
  Company Number: CO-PFIZER INC-202500001612

PATIENT
  Age: 9 Year
  Sex: Male

DRUGS (1)
  1. GENOTROPIN [Suspect]
     Active Substance: SOMATROPIN
     Dosage: 1 MG, DAILY
     Route: 058

REACTIONS (5)
  - Wrong technique in device usage process [Unknown]
  - Device difficult to use [Unknown]
  - Device physical property issue [Unknown]
  - Device mechanical issue [Unknown]
  - Device material issue [Unknown]
